FAERS Safety Report 5013251-2 (Version None)
Quarter: 2006Q2

REPORT INFORMATION
  Report Type: 
  Country: None (occurrence: None)
  Receive Date: 20060530
  Receipt Date: 20060329
  Transmission Date: 20061013
  Serious: No
  Sender: FDA-Public Use
  Company Number: US-GLAXOSMITHKLINE-A0599538A

PATIENT
  Age: 59 Year
  Sex: Female

DRUGS (5)
  1. WELLBUTRIN XL [Suspect]
     Indication: FIBROMYALGIA
     Dosage: 150MG PER DAY
     Route: 048
  2. WELLBUTRIN SR [Suspect]
     Indication: FIBROMYALGIA
     Dosage: 100MG PER DAY
     Route: 048
  3. CLONAZEPAM [Concomitant]
  4. EFFEXOR [Concomitant]
  5. PROVIGIL [Concomitant]

REACTIONS (3)
  - ENERGY INCREASED [None]
  - FATIGUE [None]
  - SOMNOLENCE [None]
